FAERS Safety Report 8530338-8 (Version None)
Quarter: 2012Q3

REPORT INFORMATION
  Report Type: 
  Country: None (occurrence: None)
  Receive Date: 20120723
  Receipt Date: 20120716
  Transmission Date: 20120928
  Serious: Yes (Hospitalization)
  Sender: FDA-Public Use
  Company Number: BR-PFIZER INC-2012170994

PATIENT
  Age: 50 Year
  Sex: Male
  Weight: 83 kg

DRUGS (7)
  1. ATENOLOL [Concomitant]
     Indication: HYPERTENSION
     Dosage: UNK
  2. ENALAPRIL [Concomitant]
     Dosage: UNK
  3. COLCHICINE [Concomitant]
     Indication: GOUT
     Dosage: UNK
  4. COPAN [Concomitant]
     Indication: ANXIETY
     Dosage: UNK
  5. LYRICA [Suspect]
     Indication: PAIN
     Dosage: UNK
     Route: 048
     Dates: start: 20111230
  6. SPIRONOLACTONE [Concomitant]
     Dosage: UNK
  7. MYDETON [Concomitant]
     Indication: PAIN
     Dosage: UNK

REACTIONS (1)
  - BONE DISORDER [None]
